FAERS Safety Report 23937231 (Version 4)
Quarter: 2024Q3

REPORT INFORMATION
  Report Type: Spontaneous
  Country: US (occurrence: US)
  Receive Date: 20240604
  Receipt Date: 20240801
  Transmission Date: 20241017
  Serious: No
  Sender: LUPIN
  Company Number: US-LUPIN PHARMACEUTICALS INC.-2024-04479

PATIENT

DRUGS (4)
  1. ALBUTEROL SULFATE [Suspect]
     Active Substance: ALBUTEROL SULFATE
     Indication: Asthma
     Dosage: UNK (1-2 PUFFS BY MOUTH EVERY 4-6 HOURS)
     Dates: start: 202401
  2. ALBUTEROL SULFATE [Suspect]
     Active Substance: ALBUTEROL SULFATE
     Dosage: UNK (1-2 PUFFS BY MOUTH EVERY 4-6 HOURS)
     Dates: start: 20240517
  3. ALBUTEROL SULFATE [Suspect]
     Active Substance: ALBUTEROL SULFATE
     Dosage: UNK (1-2 PUFFS BY MOUTH EVERY 4-6 HOURS)
  4. ALBUTEROL SULFATE [Suspect]
     Active Substance: ALBUTEROL SULFATE
     Dosage: UNK (1-2 PUFFS BY MOUTH EVERY 4-6 HOURS)

REACTIONS (4)
  - Dyspnoea [Unknown]
  - Wheezing [Unknown]
  - Drug dose omission by device [Unknown]
  - Wrong technique in product usage process [Unknown]
